FAERS Safety Report 21181913 (Version 1)
Quarter: 2022Q3

REPORT INFORMATION
  Report Type: Spontaneous
  Country: US (occurrence: US)
  Receive Date: 20220807
  Receipt Date: 20220807
  Transmission Date: 20221026
  Serious: No
  Sender: FDA-Public Use
  Company Number: US-STRIDES ARCOLAB LIMITED-2022SP004307

PATIENT
  Age: 34 Year
  Sex: Female

DRUGS (2)
  1. KETOCONAZOLE [Suspect]
     Active Substance: KETOCONAZOLE
     Indication: Pituitary-dependent Cushing^s syndrome
     Dosage: UNK, TABLET SINCE 3 MONTHS
     Route: 065
  2. KETOCONAZOLE [Suspect]
     Active Substance: KETOCONAZOLE
     Dosage: UNK, TABLET SINCE 15 APR 2022 STRIDES PRODUCT WAS NOTE
     Route: 065
     Dates: start: 202204

REACTIONS (3)
  - Urticaria [Not Recovered/Not Resolved]
  - Rash [Not Recovered/Not Resolved]
  - Off label use [Unknown]

NARRATIVE: CASE EVENT DATE: 20220401
